FAERS Safety Report 9726165 (Version 1)
Quarter: 2013Q4

REPORT INFORMATION
  Report Type: Spontaneous
  Country: FR (occurrence: FR)
  Receive Date: 20131203
  Receipt Date: 20131203
  Transmission Date: 20140711
  Serious: Yes (Other)
  Sender: FDA-Public Use
  Company Number: FR-ASTRAZENECA-2013SE87375

PATIENT
  Age: 61 Day
  Sex: Male

DRUGS (1)
  1. EMLA PATCH [Suspect]
     Dosage: ONCE/SINGLE ADMINISTRATION
     Route: 061
     Dates: start: 201309

REACTIONS (2)
  - Application site reaction [Recovered/Resolved]
  - Intentional drug misuse [Unknown]
